FAERS Safety Report 4791071-1 (Version None)
Quarter: 2005Q4

REPORT INFORMATION
  Report Type: 
  Country: None (occurrence: None)
  Receive Date: 20051005
  Receipt Date: 20050916
  Transmission Date: 20060501
  Serious: Yes (Other)
  Sender: FDA-Public Use
  Company Number: 12448

PATIENT
  Sex: Female

DRUGS (4)
  1. METHOTREXATE [Suspect]
     Dosage: 22.5 MG WEEKLY
  2. DELTRACORTRIL [Concomitant]
  3. FOSAMAX [Concomitant]
  4. FOLIC ACID [Concomitant]

REACTIONS (1)
  - OVARIAN CANCER [None]
